FAERS Safety Report 16769710 (Version 2)
Quarter: 2019Q3

REPORT INFORMATION
  Report Type: Spontaneous
  Country: US (occurrence: US)
  Receive Date: 20190904
  Receipt Date: 20190930
  Transmission Date: 20191005
  Serious: No
  Sender: FDA-Public Use
  Company Number: US-009507513-1908USA009290

PATIENT
  Age: 34 Year
  Sex: Female
  Weight: 61.68 kg

DRUGS (2)
  1. NEXPLANON [Suspect]
     Active Substance: ETONOGESTREL
     Dosage: 1 DOSAGE FORM, LEFT ARM, IN THE SULCUS BICIPITAILS MEDIALIS (GROOVE BETWEEM BICEPS AND TRICEPS)
     Route: 059
     Dates: start: 20190822, end: 20190822
  2. NEXPLANON [Suspect]
     Active Substance: ETONOGESTREL
     Dosage: UNIT, 68MG, LEFT ARM, IN THE SULCUS BICIPITAILS MEDIALIS (GROOVE BETWEEM BICEPS AND TRICEPS)
     Route: 059
     Dates: start: 20190822

REACTIONS (5)
  - Product quality issue [Unknown]
  - Complication of device insertion [Recovered/Resolved]
  - Device difficult to use [Recovered/Resolved]
  - Device expulsion [Recovered/Resolved]
  - No adverse event [Unknown]

NARRATIVE: CASE EVENT DATE: 20190822
